FAERS Safety Report 24971955 (Version 1)
Quarter: 2025Q1

REPORT INFORMATION
  Report Type: Spontaneous
  Country: GB (occurrence: GB)
  Receive Date: 20250214
  Receipt Date: 20250214
  Transmission Date: 20250409
  Serious: Yes (Other)
  Sender: ELI LILLY AND COMPANY
  Company Number: None

PATIENT
  Age: 29 Year
  Sex: Female

DRUGS (4)
  1. MOUNJARO [Suspect]
     Active Substance: TIRZEPATIDE
     Indication: Weight control
     Dosage: 2.5 MG, WEEKLY (1/W)
     Route: 065
     Dates: start: 20250123
  2. SERTRALINE [Concomitant]
     Active Substance: SERTRALINE HYDROCHLORIDE
     Indication: Depression
  3. DIHYDROCODEINE [Concomitant]
     Active Substance: DIHYDROCODEINE
     Indication: Neuralgia
  4. PROPRANOLOL HYDROCHLORIDE [Concomitant]
     Active Substance: PROPRANOLOL HYDROCHLORIDE
     Indication: Product used for unknown indication

REACTIONS (5)
  - Myalgia [Recovering/Resolving]
  - Neck pain [Recovering/Resolving]
  - Back pain [Recovering/Resolving]
  - Feeling of body temperature change [Recovering/Resolving]
  - Headache [Recovering/Resolving]

NARRATIVE: CASE EVENT DATE: 20250101
